FAERS Safety Report 11423178 (Version 3)
Quarter: 2016Q1

REPORT INFORMATION
  Report Type: Report from Study
  Country: JP (occurrence: JP)
  Receive Date: 20150827
  Receipt Date: 20160310
  Transmission Date: 20160525
  Serious: Yes (Death, Other)
  Sender: FDA-Public Use
  Company Number: JP-OTSUKA-2015_007958

PATIENT
  Age: 81 Year
  Sex: Male

DRUGS (18)
  1. SOLDEM 3A [Concomitant]
     Active Substance: CARBOHYDRATES\POTASSIUM CHLORIDE\SODIUM CHLORIDE\SODIUM LACTATE
     Indication: CARDIAC FAILURE
     Dosage: 1000 ML, DAILY DOSE
     Route: 042
     Dates: start: 20150606, end: 20150607
  2. SODIUM CHLORIDE. [Concomitant]
     Active Substance: SODIUM CHLORIDE
     Indication: CARDIAC FAILURE
     Dosage: 80 ML, DAILY DOSE
     Route: 042
     Dates: start: 20150603, end: 20150605
  3. SULBACILLIN [Concomitant]
     Active Substance: AMPICILLIN SODIUM\SULBACTAM SODIUM
     Indication: PRODUCT USED FOR UNKNOWN INDICATION
     Dosage: 1.5 G/DAY
     Route: 042
     Dates: start: 20150603, end: 20150609
  4. NIFEDIPINE. [Concomitant]
     Active Substance: NIFEDIPINE
     Indication: PRODUCT USED FOR UNKNOWN INDICATION
     Dosage: 20 MG/DAY
     Route: 048
     Dates: end: 20150609
  5. MEROPENEM TRIHYDRATE [Concomitant]
     Active Substance: MEROPENEM
     Indication: PRODUCT USED FOR UNKNOWN INDICATION
     Dosage: 2 G, DAILY DOSE
     Route: 042
     Dates: start: 20150608, end: 20150609
  6. MYOCOR [Concomitant]
     Indication: CARDIAC FAILURE
     Dosage: 25 MG/DAY
     Route: 042
     Dates: start: 20150603, end: 20150607
  7. CLEXANE [Concomitant]
     Active Substance: ENOXAPARIN SODIUM
     Indication: PROPHYLAXIS
     Dosage: 4000 IU, DAILY DOSE
     Route: 058
     Dates: start: 20150603, end: 20150606
  8. NEOPHAGEN [Concomitant]
     Active Substance: GLYCYRRHIZIN
     Indication: PRODUCT USED FOR UNKNOWN INDICATION
     Dosage: 80 ML/DAY
     Route: 042
     Dates: start: 20150603, end: 20150606
  9. SOLU-CORTEF [Concomitant]
     Active Substance: HYDROCORTISONE SODIUM SUCCINATE
     Indication: PRODUCT USED FOR UNKNOWN INDICATION
     Dosage: 400 MG, DAILY DOSE
     Route: 042
     Dates: start: 20150604, end: 20150608
  10. NORMAL SALINE [Concomitant]
     Active Substance: SODIUM CHLORIDE
     Indication: PRODUCT USED FOR UNKNOWN INDICATION
     Dosage: 500 ML, DAILY DOSE
     Route: 042
     Dates: start: 20150608, end: 20150608
  11. TOLVAPTAN [Suspect]
     Active Substance: TOLVAPTAN
     Indication: FLUID RETENTION
     Dosage: 15 MG, QD, IN THE MORNING
     Route: 048
     Dates: start: 20150603, end: 20150606
  12. GLUCOSE [Concomitant]
     Active Substance: DEXTROSE
     Indication: CARDIAC FAILURE
     Dosage: 1500 ML, DAILY DOSE
     Route: 042
     Dates: start: 20150603, end: 20150605
  13. SOLDEM 6 [Concomitant]
     Indication: HYPERNATRAEMIA
     Dosage: 500 ML, DAILY DOSE
     Route: 042
     Dates: start: 20150608, end: 20150608
  14. DOPAMINE HYDROCHLORIDE. [Concomitant]
     Active Substance: DOPAMINE HYDROCHLORIDE
     Indication: CARDIAC FAILURE
     Dosage: 3 ?G/KG/MIN
     Route: 041
     Dates: start: 20150603, end: 20150606
  15. DOBUPUM [Concomitant]
     Active Substance: DOBUTAMINE HYDROCHLORIDE
     Indication: CARDIAC FAILURE
     Dosage: 3 ?G/KG/MIN
     Route: 041
     Dates: start: 20150603, end: 20150606
  16. KCL CORRECTIVE [Concomitant]
     Indication: CARDIAC FAILURE
     Dosage: 20 ML, DAILY DOSE
     Route: 042
     Dates: start: 20150603, end: 20150605
  17. SOLDEM 3AG [Concomitant]
     Indication: PRODUCT USED FOR UNKNOWN INDICATION
     Dosage: 1000 ML, DAILY DOSE
     Route: 042
     Dates: start: 20150609, end: 20150609
  18. LASIX M [Concomitant]
     Active Substance: FUROSEMIDE
     Indication: CARDIAC FAILURE
     Dosage: 40 MG/DAY
     Route: 042
     Dates: start: 20150603, end: 20150606

REACTIONS (4)
  - Disseminated intravascular coagulation [Fatal]
  - Ischaemic hepatitis [Not Recovered/Not Resolved]
  - Blood urea increased [Not Recovered/Not Resolved]
  - Hypernatraemia [Not Recovered/Not Resolved]

NARRATIVE: CASE EVENT DATE: 20150608
